FAERS Safety Report 7711540-1 (Version None)
Quarter: 2011Q3

REPORT INFORMATION
  Report Type: 
  Country: None (occurrence: None)
  Receive Date: 20110826
  Receipt Date: 20110818
  Transmission Date: 20111222
  Serious: Yes (Hospitalization)
  Sender: FDA-Public Use
  Company Number: PL-JNJFOC-20110809518

PATIENT
  Sex: Female
  Weight: 75 kg

DRUGS (8)
  1. PANTOPRAZOLE [Concomitant]
     Route: 065
  2. ALVESCO [Concomitant]
     Route: 065
  3. FUROSEMIDE [Concomitant]
     Route: 065
  4. LACTULOSE [Concomitant]
     Route: 065
  5. LEXAPRO [Concomitant]
     Route: 065
  6. DURAGESIC-100 [Suspect]
     Indication: BREAST CANCER IN SITU
     Route: 062
     Dates: start: 20110711, end: 20110717
  7. DEPAKENE [Concomitant]
     Route: 065
  8. ACETAMINOPHEN [Concomitant]
     Route: 065

REACTIONS (1)
  - HYPERAESTHESIA [None]
